FAERS Safety Report 8514643-7 (Version None)
Quarter: 2012Q3

REPORT INFORMATION
  Report Type: 
  Country: None (occurrence: None)
  Receive Date: 20120717
  Receipt Date: 20120709
  Transmission Date: 20120928
  Serious: Yes (Other)
  Sender: FDA-Public Use
  Company Number: US-CELGENEUS-163-20785-12070774

PATIENT
  Sex: Female

DRUGS (3)
  1. THALOMID [Suspect]
     Indication: MULTIPLE MYELOMA
     Dosage: 200 MILLIGRAM
     Route: 048
     Dates: start: 20061101, end: 20070601
  2. DEXAMETHASONE [Concomitant]
     Route: 065
     Dates: start: 20061101
  3. ZOMETA [Concomitant]
     Route: 065
     Dates: start: 20061101, end: 20080101

REACTIONS (2)
  - DEEP VEIN THROMBOSIS [None]
  - RENAL CELL CARCINOMA [None]
